FAERS Safety Report 7315371-6 (Version None)
Quarter: 2011Q1

REPORT INFORMATION
  Report Type: 
  Country: None (occurrence: None)
  Receive Date: 20110225
  Receipt Date: 20110217
  Transmission Date: 20110831
  Serious: Yes (Other)
  Sender: FDA-Public Use
  Company Number: US-SANOFI-AVENTIS-2011SA011258

PATIENT
  Age: 57 Year
  Sex: Female

DRUGS (3)
  1. DIABETA [Suspect]
     Route: 048
  2. SEROQUEL [Suspect]
     Route: 065
  3. METFORMIN HCL [Concomitant]

REACTIONS (2)
  - CATARACT [None]
  - BLOOD GLUCOSE INCREASED [None]
